FAERS Safety Report 14072357 (Version 2)
Quarter: 2018Q2

REPORT INFORMATION
  Report Type: Spontaneous
  Country: US (occurrence: US)
  Receive Date: 20171010
  Receipt Date: 20180404
  Transmission Date: 20180711
  Serious: No
  Sender: FDA-Public Use
  Company Number: US-SA-2017SA183933

PATIENT
  Age: 39 Year
  Sex: Female

DRUGS (13)
  1. SYNTHROID [Concomitant]
     Active Substance: LEVOTHYROXINE SODIUM
     Route: 065
     Dates: start: 20170707
  2. TRIAMCINOLONE [Concomitant]
     Active Substance: TRIAMCINOLONE
     Dosage: STRENGTH: 0.1%
     Route: 065
     Dates: start: 20170720
  3. CALCIFEROL [Concomitant]
     Active Substance: ERGOCALCIFEROL
     Route: 065
     Dates: start: 20170707
  4. CLOBETASOL [Concomitant]
     Active Substance: CLOBETASOL
     Dosage: 0.05%
     Route: 065
     Dates: start: 20170707
  5. FISH OIL [Concomitant]
     Active Substance: FISH OIL
     Route: 065
     Dates: start: 20170707
  6. DUPIXENT [Suspect]
     Active Substance: DUPILUMAB
     Indication: DERMATITIS ATOPIC
     Route: 058
     Dates: start: 2017
  7. DUPIXENT [Suspect]
     Active Substance: DUPILUMAB
     Indication: ECZEMA
     Route: 058
     Dates: start: 2017
  8. WAL-ZYR (CETIRIZINE HYDROCHLORIDE) [Concomitant]
     Active Substance: CETIRIZINE HYDROCHLORIDE
     Route: 065
     Dates: start: 20170707
  9. ELIDEL [Concomitant]
     Active Substance: PIMECROLIMUS
     Dosage: STRENGTH: 1%
     Route: 065
     Dates: start: 20170720
  10. EUCRISA [Concomitant]
     Active Substance: CRISABOROLE
     Dosage: STRENGTH: 2%
     Route: 065
     Dates: start: 20170707
  11. VANICREAM [Concomitant]
     Active Substance: TITANIUM DIOXIDE\ZINC OXIDE
     Route: 065
     Dates: start: 20170720
  12. FLONASE [Concomitant]
     Active Substance: FLUTICASONE PROPIONATE
     Indication: HYPERSENSITIVITY
     Route: 065
     Dates: start: 20170707
  13. ZYRTEC [Concomitant]
     Active Substance: CETIRIZINE HYDROCHLORIDE
     Indication: HYPERSENSITIVITY
     Route: 065
     Dates: start: 20170720

REACTIONS (3)
  - Dermatitis [Not Recovered/Not Resolved]
  - Eye swelling [Unknown]
  - Rash [Unknown]

NARRATIVE: CASE EVENT DATE: 2017
